FAERS Safety Report 8886819 (Version 1)
Quarter: 2012Q4

REPORT INFORMATION
  Report Type: 
  Country: GB (occurrence: GB)
  Receive Date: 20121105
  Receipt Date: 20121105
  Transmission Date: 20130627
  Serious: Yes (Death, Other)
  Sender: FDA-Public Use
  Company Number: GB-PFIZER INC-2012270640

PATIENT
  Age: 66 Year
  Sex: Female

DRUGS (14)
  1. CISPLATIN [Suspect]
     Indication: LUNG CANCER METASTATIC
     Dosage: 131 mg, single dose
     Route: 042
     Dates: start: 20121008, end: 20121008
  2. PEMETREXED [Suspect]
     Indication: LUNG CANCER METASTATIC
     Dosage: 875 mg, UNK
     Route: 042
     Dates: start: 20121008, end: 20121008
  3. VANCOMYCIN [Concomitant]
  4. METRONIDAZOLE [Concomitant]
  5. ALFENTANIL [Concomitant]
  6. MIDAZOLAM [Concomitant]
  7. LEVOMEPROMAZINE [Concomitant]
  8. DEXAMETHASONE [Concomitant]
  9. MORPHINE SULFATE [Concomitant]
  10. CIPROFLOXACIN [Concomitant]
  11. BENDROFLUMETHIAZIDE [Concomitant]
  12. DOMPERIDONE [Concomitant]
  13. FLUCONAZOLE [Concomitant]
  14. TAZOCIN [Concomitant]

REACTIONS (4)
  - Neutropenia [Fatal]
  - Malaise [Not Recovered/Not Resolved]
  - Respiratory tract infection [Not Recovered/Not Resolved]
  - Renal failure acute [Not Recovered/Not Resolved]
